FAERS Safety Report 8844359 (Version 2)
Quarter: 2012Q4

REPORT INFORMATION
  Report Type: 
  Country: CA (occurrence: CA)
  Receive Date: 20121017
  Receipt Date: 20121017
  Transmission Date: 20130627
  Serious: Yes (Other)
  Sender: FDA-Public Use
  Company Number: CA-BAYER-2012-104207

PATIENT
  Age: 37 Year
  Sex: Female

DRUGS (1)
  1. MIRENA [Suspect]
     Dosage: 20 mcg/24hr, CONT
     Route: 015
     Dates: start: 20120711, end: 20121003

REACTIONS (5)
  - Menometrorrhagia [None]
  - Vaginal haemorrhage [None]
  - Vaginal haemorrhage [None]
  - Product shape issue [None]
  - Coital bleeding [None]
